FAERS Safety Report 8271632 (Version 3)
Quarter: 2013Q2

REPORT INFORMATION
  Report Type: Spontaneous
  Country: US (occurrence: None)
  Receive Date: 20111122
  Receipt Date: 20120426
  Transmission Date: 20140414
  Serious: Yes (Other)
  Sender: FDA-Public Use
  Company Number: PHHY2011US62846

PATIENT
  Age: 48 Year
  Sex: Female

DRUGS (4)
  1. GILENYA (FTY) CAPSULE, 0.5MG [Suspect]
     Indication: RELAPSING-REMITTING MULTIPLE SCLEROSIS
     Dosage: 0.5 MG, QD, ORAL
     Route: 048
     Dates: start: 20110523
  2. FAMPRIDINE [Concomitant]
  3. CITALOPRAM HYDROBROMIDE [Concomitant]
  4. LISINOPRIL (LISINOPRIL) [Concomitant]

REACTIONS (7)
  - EYE DISORDER [None]
  - ARTHRALGIA [None]
  - HYPOKINESIA [None]
  - GAIT DISTURBANCE [None]
  - FALL [None]
  - CONTUSION [None]
  - DRUG INEFFECTIVE [None]
